FAERS Safety Report 4392503-3 (Version None)
Quarter: 2004Q3

REPORT INFORMATION
  Report Type: 
  Country: None (occurrence: None)
  Receive Date: 20040708
  Receipt Date: 20040630
  Transmission Date: 20050211
  Serious: Yes (Death)
  Sender: FDA-Public Use
  Company Number: JP-BRISTOL-MYERS SQUIBB COMPANY-12629374

PATIENT
  Age: 72 Year
  Sex: Male

DRUGS (5)
  1. TAXOL [Suspect]
     Indication: MALIGNANT MEDIASTINAL NEOPLASM
     Route: 042
     Dates: start: 20040601, end: 20040601
  2. PARAPLATIN [Suspect]
     Indication: MALIGNANT MEDIASTINAL NEOPLASM
     Route: 042
     Dates: start: 20040601, end: 20040601
  3. DECADRON [Concomitant]
     Indication: PREMEDICATION
     Route: 042
     Dates: start: 20040601, end: 20040601
  4. ONDANSETRON [Concomitant]
     Indication: PREMEDICATION
     Route: 042
     Dates: start: 20040601, end: 20040601
  5. RANITIDINE HCL [Concomitant]
     Indication: PREMEDICATION
     Route: 042
     Dates: start: 20040601, end: 20040601

REACTIONS (1)
  - INTERSTITIAL LUNG DISEASE [None]
